FAERS Safety Report 7920445-2 (Version None)
Quarter: 2011Q4

REPORT INFORMATION
  Report Type: 
  Country: None (occurrence: None)
  Receive Date: 20111117
  Receipt Date: 20111107
  Transmission Date: 20120403
  Serious: Yes (Other)
  Sender: FDA-Public Use
  Company Number: PHHY2011BR099094

PATIENT
  Sex: Female

DRUGS (5)
  1. DIOVAN [Suspect]
     Indication: HYPERTENSION
     Dosage: 160 MG, (ONE TABLET A DAY)
     Route: 048
  2. ARTROLIVE [Concomitant]
     Indication: OSTEOARTHRITIS
     Route: 048
  3. ATENOLOL [Suspect]
     Dosage: 25 MG, (TWO TABLET A DAY)
  4. AMLODIPINE BESYLATE [Suspect]
     Indication: HYPERTENSION
     Dosage: 2.5 MG, (ONE TABLET A DAY)
     Route: 048
  5. ATENOLOL [Suspect]
     Indication: HYPERTENSION
     Dosage: 25 MG, (ONE TABLET A DAY)

REACTIONS (3)
  - BLOOD PRESSURE INADEQUATELY CONTROLLED [None]
  - CATARACT [None]
  - OSTEOARTHRITIS [None]
